FAERS Safety Report 25879338 (Version 2)
Quarter: 2025Q4

REPORT INFORMATION
  Report Type: Spontaneous
  Country: US (occurrence: US)
  Receive Date: 20251003
  Receipt Date: 20251014
  Transmission Date: 20260118
  Serious: Yes (Hospitalization)
  Sender: BIOGEN
  Company Number: US-BIOGEN-2025BI01325241

PATIENT
  Age: 20 Year
  Sex: Female
  Weight: 67 kg

DRUGS (53)
  1. SPINRAZA [Suspect]
     Active Substance: NUSINERSEN
     Indication: Spinal muscular atrophy
     Route: 050
     Dates: start: 20220816
  2. DULOXETINE [Concomitant]
     Active Substance: DULOXETINE
     Indication: Anxiety
     Route: 050
     Dates: start: 20240111
  3. ACETAMINOPHEN [Concomitant]
     Active Substance: ACETAMINOPHEN
     Indication: Pain
     Route: 050
     Dates: start: 20151203
  4. ACETAMINOPHEN [Concomitant]
     Active Substance: ACETAMINOPHEN
     Route: 050
     Dates: start: 20240426, end: 20240426
  5. ACETAMINOPHEN [Concomitant]
     Active Substance: ACETAMINOPHEN
     Route: 050
     Dates: start: 20250426, end: 20250428
  6. ALBUTEROL [Concomitant]
     Active Substance: ALBUTEROL
     Indication: Respiratory disorder
     Route: 050
     Dates: start: 20240111
  7. ALBUTEROL [Concomitant]
     Active Substance: ALBUTEROL
     Route: 050
     Dates: start: 20211209
  8. ASCORBIC ACID [Concomitant]
     Active Substance: ASCORBIC ACID
     Indication: Supplementation therapy
     Route: 050
     Dates: start: 20230809
  9. CHOLECALCIFEROL [Concomitant]
     Active Substance: CHOLECALCIFEROL
     Indication: Supplementation therapy
     Route: 050
     Dates: start: 20230809
  10. DICLOFENAC [Concomitant]
     Active Substance: DICLOFENAC
     Indication: Pain
     Route: 050
     Dates: start: 20230201
  11. DOCUSATE [Concomitant]
     Active Substance: DOCUSATE
     Indication: Constipation
     Route: 050
     Dates: start: 20191010
  12. FAMOTIDINE [Concomitant]
     Active Substance: FAMOTIDINE
     Indication: Gastrooesophageal reflux disease
     Route: 050
     Dates: start: 20220801
  13. GABAPENTIN [Concomitant]
     Active Substance: GABAPENTIN
     Indication: Muscle spasms
     Route: 050
     Dates: start: 20231003
  14. GABAPENTIN [Concomitant]
     Active Substance: GABAPENTIN
     Route: 050
  15. MINOCYCLINE [Concomitant]
     Active Substance: MINOCYCLINE HYDROCHLORIDE
     Indication: Infection prophylaxis
     Route: 050
     Dates: start: 20230809
  16. MONTELUKAST [Concomitant]
     Active Substance: MONTELUKAST
     Indication: Respiratory disorder
     Route: 050
     Dates: start: 20131107
  17. MONTELUKAST [Concomitant]
     Active Substance: MONTELUKAST
     Route: 050
  18. NALOXONE [Concomitant]
     Active Substance: NALOXONE
     Indication: Respiratory depression
     Route: 050
     Dates: start: 20200722
  19. NAPROXEN [Concomitant]
     Active Substance: NAPROXEN
     Indication: Pain
     Route: 050
     Dates: start: 20230809
  20. NORETHINDRONE [Concomitant]
     Active Substance: NORETHINDRONE
     Indication: Menstrual disorder
     Route: 050
     Dates: start: 20210603
  21. SODIUM CHLORIDE [Concomitant]
     Active Substance: SODIUM CHLORIDE
     Indication: Secretion discharge
     Route: 050
     Dates: start: 20150315
  22. SODIUM CHLORIDE [Concomitant]
     Active Substance: SODIUM CHLORIDE
     Route: 050
     Dates: start: 20220925
  23. TRAZODONE [Concomitant]
     Active Substance: TRAZODONE HYDROCHLORIDE
     Indication: Anxiety
     Route: 050
     Dates: start: 20221019
  24. ATIVAN [Concomitant]
     Active Substance: LORAZEPAM
     Indication: Anxiety
     Route: 050
     Dates: start: 20130721
  25. ATIVAN [Concomitant]
     Active Substance: LORAZEPAM
     Route: 050
  26. PROPOFOL [Concomitant]
     Active Substance: PROPOFOL
     Indication: Anaesthesia
     Route: 050
     Dates: start: 20240426, end: 20240426
  27. PROPOFOL [Concomitant]
     Active Substance: PROPOFOL
     Dosage: 150 MCG/KG/MIN
     Route: 050
     Dates: start: 20240426, end: 20240426
  28. ROCURONIUM [Concomitant]
     Active Substance: ROCURONIUM BROMIDE
     Indication: Anaesthesia
     Route: 050
     Dates: start: 20240426, end: 20240426
  29. DEXAMETHASONE [Concomitant]
     Active Substance: DEXAMETHASONE
     Indication: Anaesthesia
     Route: 050
     Dates: start: 20240426, end: 20240426
  30. FENTANYL [Concomitant]
     Active Substance: FENTANYL
     Indication: Anaesthesia
     Route: 050
     Dates: start: 20240426, end: 20240426
  31. REMIFENTANIL [Concomitant]
     Active Substance: REMIFENTANIL
     Indication: Anaesthesia
     Route: 050
     Dates: start: 20240426, end: 20240426
  32. REMIFENTANIL [Concomitant]
     Active Substance: REMIFENTANIL
     Dosage: 0.2 MCG/KG/MIN
     Route: 050
     Dates: start: 20240426, end: 20240426
  33. SUGAMMADEX [Concomitant]
     Active Substance: SUGAMMADEX
     Indication: Anaesthesia
     Route: 050
     Dates: start: 20240426, end: 20240426
  34. BUPIVACAINE\EPINEPHRINE [Concomitant]
     Active Substance: BUPIVACAINE\EPINEPHRINE
     Indication: Local anaesthesia
     Route: 050
     Dates: start: 20240426, end: 20240426
  35. CEFAZOLIN [Concomitant]
     Active Substance: CEFAZOLIN
     Indication: Antibiotic prophylaxis
     Route: 050
     Dates: start: 20240426, end: 20240427
  36. AYGESTIN [Concomitant]
     Active Substance: NORETHINDRONE ACETATE
     Indication: Menstruation irregular
     Route: 050
     Dates: start: 20240426
  37. KETOROLAC [Concomitant]
     Active Substance: KETOROLAC TROMETHAMINE
     Indication: Procedural pain
     Route: 050
     Dates: start: 20240427, end: 20240427
  38. LACTATED RINGERS SOLUTION [Concomitant]
     Active Substance: CALCIUM CHLORIDE\POTASSIUM CHLORIDE\SODIUM CHLORIDE\SODIUM LACTATE
     Indication: Fluid replacement
     Route: 050
     Dates: start: 20240426, end: 20240426
  39. LORAZEPAM [Concomitant]
     Active Substance: LORAZEPAM
     Indication: Procedural pain
     Route: 050
     Dates: start: 20240426, end: 20240427
  40. POVIDONE-IODINE [Concomitant]
     Active Substance: POVIDONE-IODINE
     Indication: Procedural site reaction
     Route: 050
     Dates: start: 20240426, end: 20240426
  41. BUTYLSCOPOLAMINE BROMIDE [Concomitant]
     Active Substance: BUTYLSCOPOLAMINE BROMIDE
     Indication: Procedural pain
     Route: 050
     Dates: start: 20240426, end: 20240426
  42. SENNA LEAF [Concomitant]
     Active Substance: SENNA LEAF
     Indication: Constipation
     Route: 050
     Dates: start: 20240426, end: 20240428
  43. VANCOMYCIN [Concomitant]
     Active Substance: VANCOMYCIN
     Indication: Post procedural infection
     Route: 050
     Dates: start: 20240426, end: 20240428
  44. HYDROMORPHONE [Concomitant]
     Active Substance: HYDROMORPHONE
     Indication: Procedural pain
     Route: 050
     Dates: start: 20250426, end: 20250426
  45. MORPHINE [Concomitant]
     Active Substance: MORPHINE
     Indication: Procedural pain
     Route: 050
     Dates: start: 20240427, end: 20240504
  46. MORPHINE [Concomitant]
     Active Substance: MORPHINE
     Route: 050
     Dates: start: 20240426, end: 20240427
  47. ONDANSETRON [Concomitant]
     Active Substance: ONDANSETRON
     Indication: Procedural nausea
     Route: 050
     Dates: start: 20240427, end: 20240502
  48. OXYCODONE [Concomitant]
     Active Substance: OXYCODONE
     Indication: Procedural pain
     Route: 050
     Dates: start: 20240426, end: 20240426
  49. CEPHALEXIN [Concomitant]
     Active Substance: CEPHALEXIN
     Indication: Infection prophylaxis
     Route: 050
     Dates: start: 20240503, end: 20240513
  50. EMLA [Concomitant]
     Active Substance: LIDOCAINE\PRILOCAINE
     Indication: Local anaesthesia
     Route: 050
     Dates: start: 20240508, end: 20240508
  51. LIDOCAINE [Concomitant]
     Active Substance: LIDOCAINE
     Indication: Local anaesthesia
     Route: 050
     Dates: start: 20240911, end: 20240911
  52. DOXEPIN [Concomitant]
     Active Substance: DOXEPIN
     Indication: Product used for unknown indication
     Route: 050
  53. MAGNESIUM OXIDE [Concomitant]
     Active Substance: MAGNESIUM OXIDE
     Indication: Product used for unknown indication
     Route: 050

REACTIONS (4)
  - Viral infection [Recovered/Resolved]
  - Migraine [Not Recovered/Not Resolved]
  - Wound dehiscence [Unknown]
  - Headache [Unknown]

NARRATIVE: CASE EVENT DATE: 20250918
